FAERS Safety Report 16459015 (Version 1)
Quarter: 2019Q2

REPORT INFORMATION
  Report Type: Spontaneous
  Country: US (occurrence: US)
  Receive Date: 20190620
  Receipt Date: 20190620
  Transmission Date: 20190711
  Serious: No
  Sender: FDA-Public Use
  Company Number: US-THERAPEUTICSMD-2019TMD01159

PATIENT
  Sex: Female
  Weight: 64.4 kg

DRUGS (5)
  1. CYTOMEL [Concomitant]
     Active Substance: LIOTHYRONINE SODIUM
  2. IMVEXXY [Suspect]
     Active Substance: ESTRADIOL
     Indication: URINARY TRACT DISORDER
     Dosage: 10 ?G, 1X/DAY AT BEDTIME
     Route: 067
     Dates: start: 201903, end: 201903
  3. IMVEXXY [Suspect]
     Active Substance: ESTRADIOL
     Indication: VULVOVAGINAL DISCOMFORT
     Dosage: 10 ?G, AT BEDTIME (SPREAD OUT THE DOSING FREQUENCY)
     Route: 067
     Dates: start: 2019
  4. IMVEXXY [Suspect]
     Active Substance: ESTRADIOL
     Indication: VULVOVAGINAL PAIN
     Dosage: 10 ?G, 2X/WEEK AT BEDTIME
     Route: 067
     Dates: start: 2019, end: 2019
  5. SYNTHROID [Concomitant]
     Active Substance: LEVOTHYROXINE SODIUM

REACTIONS (12)
  - Migraine [Recovering/Resolving]
  - Nausea [Recovering/Resolving]
  - Intentional dose omission [Recovered/Resolved]
  - Fluid retention [Recovering/Resolving]
  - Alopecia [Recovering/Resolving]
  - Food craving [Recovering/Resolving]
  - Abdominal distension [Recovering/Resolving]
  - Off label use [Not Recovered/Not Resolved]
  - Heart rate increased [Recovering/Resolving]
  - Pain in extremity [Recovering/Resolving]
  - Insomnia [Recovering/Resolving]
  - Breast pain [Recovering/Resolving]

NARRATIVE: CASE EVENT DATE: 2019
